FAERS Safety Report 4330622-8 (Version None)
Quarter: 2004Q1

REPORT INFORMATION
  Report Type: 
  Country: None (occurrence: None)
  Receive Date: 20040329
  Receipt Date: 20040312
  Transmission Date: 20041129
  Serious: Yes (Death, Hospitalization)
  Sender: FDA-Public Use
  Company Number: 2004US000306

PATIENT
  Age: 48 Year
  Sex: Male

DRUGS (2)
  1. PROGRAF [Suspect]
     Indication: LIVER TRANSPLANT
     Dosage: 1.00 MG, BID,
  2. PREDNISONE [Concomitant]

REACTIONS (4)
  - CRYPTOGENIC ORGANIZING PNEUMONIA [None]
  - MULTI-ORGAN FAILURE [None]
  - OEDEMA PERIPHERAL [None]
  - SEPSIS [None]
